FAERS Safety Report 8909097 (Version 5)
Quarter: 2014Q1

REPORT INFORMATION
  Report Type: Spontaneous
  Country: GB (occurrence: GB)
  Receive Date: 20121114
  Receipt Date: 20140120
  Transmission Date: 20141002
  Serious: Yes (Life-Threatening, Hospitalization, Other)
  Sender: FDA-Public Use
  Company Number: GB-PFIZER INC-2012284129

PATIENT
  Age: 72 Year
  Sex: 0

DRUGS (9)
  1. PIPERACILLIN/TAZOBACTAM [Suspect]
     Indication: PNEUMONIA
     Dosage: 4.5 G, 3X/DAY
     Route: 041
     Dates: start: 20110420, end: 20110425
  2. METRONIDAZOLE [Suspect]
     Dosage: 500 MG, 3X/DAY, 100MG / 20ML SOLUTION FOR INFUSTION AMPOULES.L
     Route: 041
     Dates: start: 20110308, end: 20110308
  3. MEROPENEM [Suspect]
     Indication: PANCREATITIS NECROTISING
     Dosage: 1 G, 3X/DAY
     Route: 041
     Dates: start: 20110309, end: 20110313
  4. CEFUROXIME [Suspect]
     Dosage: 1.5 G, SINGLE
     Route: 041
     Dates: start: 20110803, end: 20110803
  5. CEFTRIAXONE [Suspect]
     Indication: PANCREATITIS
     Dosage: 1 G, 1X/DAY
     Route: 041
     Dates: start: 20110803, end: 20110803
  6. CO-AMOXICLAV [Suspect]
     Indication: SEPSIS
     Dosage: 1.2 G, 3X/DAY
     Route: 041
     Dates: start: 20110328, end: 20110403
  7. ERYTHROMYCIN [Suspect]
     Dosage: 125 MG, 3X/DAY
     Route: 048
     Dates: start: 20110319, end: 20110325
  8. TRIMETHOPRIM [Suspect]
     Indication: URINARY TRACT INFECTION
     Dosage: 200 MG, 2X/DAY
     Route: 048
     Dates: start: 20110305, end: 20110305
  9. FLUCLOXACILLIN [Suspect]
     Dosage: 500 MG, 4X/DAY
     Route: 048
     Dates: start: 20100908

REACTIONS (1)
  - Clostridium test positive [Recovered/Resolved]
